FAERS Safety Report 5631093-1 (Version None)
Quarter: 2008Q1

REPORT INFORMATION
  Report Type: 
  Country: None (occurrence: None)
  Receive Date: 20080219
  Receipt Date: 20080207
  Transmission Date: 20080703
  Serious: Yes (Other)
  Sender: FDA-Public Use
  Company Number: FR-PFIZER INC-2008012623

PATIENT
  Age: 76 Year
  Sex: Female

DRUGS (1)
  1. LYRICA [Suspect]
     Indication: EPILEPSY

REACTIONS (4)
  - APATHY [None]
  - EPILEPSY [None]
  - SOMNOLENCE [None]
  - WEIGHT DECREASED [None]
